FAERS Safety Report 15131230 (Version 2)
Quarter: 2018Q3

REPORT INFORMATION
  Report Type: Spontaneous
  Country: US (occurrence: US)
  Receive Date: 20180711
  Receipt Date: 20180828
  Transmission Date: 20181010
  Serious: Yes (Other)
  Sender: FDA-Public Use
  Company Number: US-JNJFOC-20180705175

PATIENT
  Age: 85 Year
  Sex: Female

DRUGS (2)
  1. METOPROLOL. [Suspect]
     Active Substance: METOPROLOL
     Indication: HYPERTENSION
     Route: 065
     Dates: start: 201705
  2. XARELTO [Suspect]
     Active Substance: RIVAROXABAN
     Indication: THROMBOSIS
     Route: 048
     Dates: start: 201705, end: 201805

REACTIONS (13)
  - Glaucoma [Unknown]
  - Feeling cold [Unknown]
  - Dizziness [Not Recovered/Not Resolved]
  - Eye haemorrhage [Unknown]
  - Ocular vascular disorder [Unknown]
  - Fall [Unknown]
  - Treatment noncompliance [Unknown]
  - Gastrointestinal haemorrhage [Unknown]
  - Product colour issue [Unknown]
  - Alopecia [Unknown]
  - Loss of consciousness [Unknown]
  - Wound infection [Unknown]
  - Contusion [Unknown]

NARRATIVE: CASE EVENT DATE: 201805
